FAERS Safety Report 7253837-8 (Version None)
Quarter: 2011Q1

REPORT INFORMATION
  Report Type: 
  Country: None (occurrence: None)
  Receive Date: 20110129
  Receipt Date: 20100426
  Transmission Date: 20110831
  Serious: No
  Sender: FDA-Public Use
  Company Number: US-ABBOTT-10P-163-0640660-00

PATIENT
  Sex: Female
  Weight: 53.572 kg

DRUGS (4)
  1. HUMIRA [Suspect]
     Indication: RHEUMATOID ARTHRITIS
     Dates: start: 20080427
  2. VIRAL PNEUMOCOCCUS VACCINATION [Concomitant]
     Indication: IMMUNISATION
     Dates: start: 20100421, end: 20100421
  3. VIRAL MEMINGITIS VACCINATION [Concomitant]
     Indication: IMMUNISATION
     Dates: start: 20100421, end: 20100421
  4. VIRAL PNEUMOCOCCUS VACCINATION [Concomitant]
     Indication: MENINGITIS VIRAL

REACTIONS (1)
  - URTICARIA [None]
